FAERS Safety Report 25425232 (Version 1)
Quarter: 2025Q2

REPORT INFORMATION
  Report Type: Spontaneous
  Country: HU (occurrence: HU)
  Receive Date: 20250611
  Receipt Date: 20250611
  Transmission Date: 20250717
  Serious: Yes (Other)
  Sender: ALEXION PHARMACEUTICALS
  Company Number: HU-ASTRAZENECA-202506EEA004124HU

PATIENT
  Age: 7 Year

DRUGS (1)
  1. KOSELUGO [Suspect]
     Active Substance: SELUMETINIB
     Indication: Brain neoplasm
     Route: 065

REACTIONS (2)
  - Papilloedema [Unknown]
  - Off label use [Unknown]
